FAERS Safety Report 6682614-1 (Version None)
Quarter: 2010Q2

REPORT INFORMATION
  Report Type: 
  Country: None (occurrence: None)
  Receive Date: 20100414
  Receipt Date: 20100414
  Transmission Date: 20101027
  Serious: Yes (Death)
  Sender: FDA-Public Use
  Company Number: None

PATIENT
  Sex: Male

DRUGS (1)
  1. NEXAVAR [Suspect]
     Indication: RENAL NEOPLASM
     Dosage: 200MG DAILY PO
     Route: 048
     Dates: start: 20090806, end: 20100301

REACTIONS (1)
  - DEATH [None]
